FAERS Safety Report 13937802 (Version 6)
Quarter: 2018Q2

REPORT INFORMATION
  Report Type: Spontaneous
  Country: US (occurrence: US)
  Receive Date: 20170905
  Receipt Date: 20180605
  Transmission Date: 20180711
  Serious: No
  Sender: FDA-Public Use
  Company Number: US-PFIZER INC-2017371975

PATIENT
  Age: 6 Year
  Sex: Female
  Weight: 23 kg

DRUGS (3)
  1. GENOTROPIN [Suspect]
     Active Substance: SOMATROPIN
     Indication: TURNER^S SYNDROME
     Dosage: 1 MG, DAILY
     Dates: start: 20170727, end: 20170823
  2. GENOTROPIN [Suspect]
     Active Substance: SOMATROPIN
     Dosage: UNK
     Dates: start: 201708
  3. GENOTROPIN [Suspect]
     Active Substance: SOMATROPIN
     Dosage: 20 MG, 1X/DAY
     Dates: start: 20170701

REACTIONS (5)
  - Drug dose omission [Unknown]
  - Malaise [Recovered/Resolved]
  - Product use issue [Unknown]
  - Vomiting [Unknown]
  - Device issue [Unknown]

NARRATIVE: CASE EVENT DATE: 20170701
